FAERS Safety Report 17194126 (Version 1)
Quarter: 2019Q4

REPORT INFORMATION
  Report Type: Spontaneous
  Country: BR (occurrence: BR)
  Receive Date: 20191224
  Receipt Date: 20191224
  Transmission Date: 20200122
  Serious: Yes (Other)
  Sender: FDA-Public Use
  Company Number: BR-SA-2019SA341805

PATIENT
  Age: 51 Year
  Sex: Female
  Weight: 54 kg

DRUGS (1)
  1. ALLEGRA [Suspect]
     Active Substance: FEXOFENADINE HYDROCHLORIDE
     Indication: HYPERSENSITIVITY
     Dosage: 1 DF, QD
     Route: 048
     Dates: start: 20191206, end: 20191208

REACTIONS (11)
  - Abdominal pain upper [Recovering/Resolving]
  - Cough [Recovering/Resolving]
  - Airway burns [Recovering/Resolving]
  - Thirst [Recovering/Resolving]
  - Hypertension [Recovering/Resolving]
  - Lip swelling [Recovering/Resolving]
  - Pharyngeal erythema [Recovering/Resolving]
  - Ocular hyperaemia [Recovering/Resolving]
  - Epiglottic oedema [Recovered/Resolved]
  - Nasal congestion [Recovering/Resolving]
  - Aphasia [Recovering/Resolving]

NARRATIVE: CASE EVENT DATE: 20191207
